FAERS Safety Report 22271040 (Version 1)
Quarter: 2023Q2

REPORT INFORMATION
  Report Type: Spontaneous
  Country: US (occurrence: None)
  Receive Date: 20230428
  Receipt Date: 20230428
  Transmission Date: 20230722
  Serious: No
  Sender: FDA-Public Use
  Company Number: None

PATIENT
  Sex: Female

DRUGS (1)
  1. RINVOQ [Suspect]
     Active Substance: UPADACITINIB
     Indication: Multiple sclerosis
     Dosage: 45MG EVERY MONTH SQ?
     Route: 058
     Dates: start: 20221109

REACTIONS (3)
  - Drug ineffective [None]
  - Myalgia [None]
  - Musculoskeletal stiffness [None]
